FAERS Safety Report 19699966 (Version 1)
Quarter: 2021Q3

REPORT INFORMATION
  Report Type: Spontaneous
  Country: US (occurrence: US)
  Receive Date: 20210813
  Receipt Date: 20210813
  Transmission Date: 20211014
  Serious: Yes (Other)
  Sender: FDA-Public Use
  Company Number: US-AMGEN-USASP2021121716

PATIENT
  Sex: Female

DRUGS (15)
  1. ZYRTEC [Concomitant]
     Active Substance: CETIRIZINE HYDROCHLORIDE
     Dosage: 10 MILLIGRAM, BID
  2. LANSOPRAZOL [Concomitant]
     Active Substance: LANSOPRAZOLE
     Dosage: 30 MILLIGRAM, BID
  3. DESMOPRESSIN [Concomitant]
     Active Substance: DESMOPRESSIN
     Dosage: 1MG THREE AT NIGHT AND ONE IN THE MORNING
  4. GABAPENTIN. [Concomitant]
     Active Substance: GABAPENTIN
     Dosage: 600 MILLIGRAM, TID
  5. SUCRALFATE. [Concomitant]
     Active Substance: SUCRALFATE
     Dosage: 1G MORNING AND NIGHT
  6. PROLIA [Suspect]
     Active Substance: DENOSUMAB
     Indication: PRODUCT USED FOR UNKNOWN INDICATION
     Dosage: UNK, Q6MO
     Route: 065
  7. VITAMIN D [COLECALCIFEROL] [Concomitant]
     Active Substance: CHOLECALCIFEROL
     Dosage: 50,000 UNITS TWICE A WEEK
  8. HYDROCORTISONE. [Concomitant]
     Active Substance: HYDROCORTISONE
  9. INTEGRA E [Concomitant]
     Dosage: FOUR TIMES A WEEK
  10. OXYBUTYNIN. [Concomitant]
     Active Substance: OXYBUTYNIN CHLORIDE
     Dosage: 10 MILLIGRAM
  11. MOVANTIK [Concomitant]
     Active Substance: NALOXEGOL OXALATE
  12. LEVOTHYROXINE. [Concomitant]
     Active Substance: LEVOTHYROXINE
  13. HYDROXYCHLOROQUINE [Concomitant]
     Active Substance: HYDROXYCHLOROQUINE
     Dosage: 200 MILLIGRAM, QD
  14. MODAFIN [Concomitant]
     Dosage: 200 MILLIGRAM, QD
  15. PROVENTIL [Concomitant]
     Active Substance: ALBUTEROL

REACTIONS (2)
  - Accident [Unknown]
  - Cyst [Unknown]
